FAERS Safety Report 8390566-1 (Version None)
Quarter: 2012Q2

REPORT INFORMATION
  Report Type: 
  Country: None (occurrence: None)
  Receive Date: 20120529
  Receipt Date: 20120521
  Transmission Date: 20120825
  Serious: Yes (Hospitalization)
  Sender: FDA-Public Use
  Company Number: PHHY2012IT031463

PATIENT
  Sex: Female

DRUGS (1)
  1. CERTICAN [Suspect]
     Indication: PROPHYLAXIS AGAINST TRANSPLANT REJECTION
     Dosage: 1.5 MG, UNK
     Route: 048
     Dates: start: 20080806, end: 20090622

REACTIONS (1)
  - KIDNEY TRANSPLANT REJECTION [None]
